FAERS Safety Report 13433774 (Version 1)
Quarter: 2017Q2

REPORT INFORMATION
  Report Type: Report from Study
  Country: JP (occurrence: JP)
  Receive Date: 20170412
  Receipt Date: 20170412
  Transmission Date: 20170830
  Serious: Yes (Hospitalization)
  Sender: FDA-Public Use
  Company Number: JP-EISAI MEDICAL RESEARCH-EC-2017-026556

PATIENT
  Age: 47 Year
  Sex: Female
  Weight: 53.3 kg

DRUGS (1)
  1. HALAVEN [Suspect]
     Active Substance: ERIBULIN MESYLATE
     Indication: BREAST CANCER
     Dosage: UNKNOWN
     Route: 041

REACTIONS (1)
  - Chronic inflammatory demyelinating polyradiculoneuropathy [Recovered/Resolved]

NARRATIVE: CASE EVENT DATE: 20161207
